FAERS Safety Report 19283948 (Version 1)
Quarter: 2021Q2

REPORT INFORMATION
  Report Type: Spontaneous
  Country: US (occurrence: US)
  Receive Date: 20210521
  Receipt Date: 20210521
  Transmission Date: 20210717
  Serious: Yes (Hospitalization)
  Sender: FDA-Public Use
  Company Number: None

PATIENT
  Age: 74 Year
  Sex: Male
  Weight: 81.2 kg

DRUGS (8)
  1. AMOXICILLIN. [Concomitant]
     Active Substance: AMOXICILLIN
  2. ALLOPURINOL. [Concomitant]
     Active Substance: ALLOPURINOL
  3. HYDROXYUREA. [Concomitant]
     Active Substance: HYDROXYUREA
  4. SACCHARONYCES BOULARDII [Concomitant]
  5. CYTARABINE. [Suspect]
     Active Substance: CYTARABINE
  6. ACETAMINOPHEN. [Concomitant]
     Active Substance: ACETAMINOPHEN
  7. OMEGA?3 ACIDS [Concomitant]
     Active Substance: OMEGA-3 FATTY ACIDS
  8. OMEPRAOLE [Concomitant]

REACTIONS (5)
  - Klebsiella bacteraemia [None]
  - Blood culture positive [None]
  - Tachycardia [None]
  - Neutrophil count decreased [None]
  - Diverticulitis [None]

NARRATIVE: CASE EVENT DATE: 20210313
